FAERS Safety Report 8949679 (Version 1)
Quarter: 2012Q4

REPORT INFORMATION
  Report Type: 
  Country: GB (occurrence: GB)
  Receive Date: 20121206
  Receipt Date: 20121206
  Transmission Date: 20130627
  Serious: No
  Sender: FDA-Public Use
  Company Number: GB-009507513-1109GBR00053

PATIENT
  Age: 32 Year
  Sex: Female

DRUGS (5)
  1. ISENTRESS [Suspect]
     Route: 048
  2. EFAVIRENZ [Suspect]
     Indication: HIV INFECTION
     Route: 048
  3. TRUVADA [Concomitant]
     Indication: HIV INFECTION
  4. NEVIRAPINE [Concomitant]
     Indication: HIV INFECTION
  5. ZIDOVUDINE [Concomitant]
     Indication: HIV INFECTION
     Route: 042

REACTIONS (1)
  - Exposure during pregnancy [Recovered/Resolved]
